FAERS Safety Report 5119309-1 (Version None)
Quarter: 2006Q4

REPORT INFORMATION
  Report Type: 
  Country: None (occurrence: None)
  Receive Date: 20061003
  Receipt Date: 20060712
  Transmission Date: 20070319
  Serious: Yes (Other)
  Sender: FDA-Public Use
  Company Number: PHRM2006FR02091

PATIENT
  Age: 59 Year
  Sex: Female
  Weight: 60 kg

DRUGS (5)
  1. FEMARA [Suspect]
     Indication: BREAST CANCER
     Dosage: 2.5 MG/DAY
     Route: 048
     Dates: start: 20060706
  2. INVESTIGATIONAL DRUG, STUTENT, A MULTI-KINASE INHIBITOR [Suspect]
     Indication: GASTROINTESTINAL STROMAL TUMOUR
     Dosage: 35 MG/DAY
     Dates: start: 20050201
  3. TRIATEC [Concomitant]
     Indication: HYPERTENSION
     Dosage: 3.25 MG/DAY
     Route: 048
     Dates: start: 20050101
  4. EUPRESSYL [Concomitant]
     Indication: HYPERTENSION
     Dosage: 2 DF/DAY
     Route: 048
  5. COTAREG [Concomitant]
     Indication: HYPERTENSION
     Dosage: 160/25 MG/DAY
     Route: 048

REACTIONS (5)
  - ASTHENIA [None]
  - BLOOD PRESSURE INCREASED [None]
  - CONDITION AGGRAVATED [None]
  - DRUG INTERACTION POTENTIATION [None]
  - FATIGUE [None]
